FAERS Safety Report 8369010-6 (Version None)
Quarter: 2012Q2

REPORT INFORMATION
  Report Type: 
  Country: None (occurrence: None)
  Receive Date: 20120518
  Receipt Date: 20120514
  Transmission Date: 20120825
  Serious: No
  Sender: FDA-Public Use
  Company Number: US-PFIZER INC-2012120318

PATIENT
  Sex: Female
  Weight: 64.853 kg

DRUGS (8)
  1. LYRICA [Suspect]
     Indication: BACK PAIN
     Dosage: 150MG IN THE MORNING AND 450MG IN THE EVENING
     Route: 048
     Dates: start: 20120101, end: 20120401
  2. VICODIN [Concomitant]
     Indication: PAIN MANAGEMENT
     Dosage: UNK
     Route: 048
     Dates: start: 20070101, end: 20120401
  3. LYRICA [Suspect]
     Indication: PAIN MANAGEMENT
     Dosage: UNK
     Route: 048
     Dates: start: 20120401, end: 20120101
  4. LYRICA [Suspect]
     Indication: OSTEOARTHRITIS
  5. AMBIEN [Concomitant]
     Indication: SLEEP DISORDER
     Dosage: UNK
     Route: 048
     Dates: end: 20120401
  6. CYMBALTA [Concomitant]
     Indication: DEPRESSION
     Dosage: UNK
  7. NEXIUM [Concomitant]
     Indication: GASTROOESOPHAGEAL REFLUX DISEASE
     Dosage: UNK
  8. ZYRTEC [Concomitant]
     Indication: HYPERSENSITIVITY
     Dosage: UNK

REACTIONS (1)
  - PAIN [None]
